FAERS Safety Report 16876336 (Version 4)
Quarter: 2020Q1

REPORT INFORMATION
  Report Type: Spontaneous
  Country: US (occurrence: US)
  Receive Date: 20191002
  Receipt Date: 20200114
  Transmission Date: 20200409
  Serious: Yes (Hospitalization, Other)
  Sender: FDA-Public Use
  Company Number: US-SHIRE-US201932197

PATIENT
  Age: 24 Year
  Sex: Male

DRUGS (1)
  1. NATPARA (PARATHYROID HORMONE) [Suspect]
     Active Substance: PARATHYROID HORMONE
     Indication: HYPOPARATHYROIDISM
     Dosage: 100 MICROGRAM, 1X/DAY:QD
     Route: 058
     Dates: start: 20160210

REACTIONS (10)
  - Malaise [Unknown]
  - Asthenia [Unknown]
  - Renal impairment [Unknown]
  - Feeling abnormal [Unknown]
  - Recalled product [Unknown]
  - Blood calcium increased [Unknown]
  - Hypocalcaemia [Not Recovered/Not Resolved]
  - Product dose omission [Unknown]
  - Abdominal discomfort [Not Recovered/Not Resolved]
  - Dyspnoea [Not Recovered/Not Resolved]

NARRATIVE: CASE EVENT DATE: 20190926
